FAERS Safety Report 13030756 (Version 1)
Quarter: 2016Q4

REPORT INFORMATION
  Report Type: Report from Study
  Country: CO (occurrence: CO)
  Receive Date: 20161215
  Receipt Date: 20161215
  Transmission Date: 20170207
  Serious: Yes (Other)
  Sender: FDA-Public Use
  Company Number: PHHY2016CO037473

PATIENT
  Age: 42 Year
  Sex: Female
  Weight: 50 kg

DRUGS (3)
  1. TYKERB [Suspect]
     Active Substance: LAPATINIB DITOSYLATE
     Indication: BREAST CANCER
     Dosage: 5 DF, QD
     Route: 048
     Dates: start: 20140515, end: 20160818
  2. TYKERB [Suspect]
     Active Substance: LAPATINIB DITOSYLATE
     Dosage: 5 DF, QD
     Route: 048
  3. CAPECITABINE. [Concomitant]
     Active Substance: CAPECITABINE
     Indication: PRODUCT USED FOR UNKNOWN INDICATION
     Route: 065

REACTIONS (16)
  - Malignant neoplasm progression [Unknown]
  - Transaminases increased [Unknown]
  - Blood alkaline phosphatase increased [Unknown]
  - Skin discolouration [Unknown]
  - Fatigue [Unknown]
  - Metastases to bone [Unknown]
  - Palmar-plantar erythrodysaesthesia syndrome [Unknown]
  - Decreased appetite [Unknown]
  - Drug intolerance [Unknown]
  - Dry skin [Unknown]
  - Breast cancer [Unknown]
  - Cardiotoxicity [Unknown]
  - Hepatic enzyme increased [Unknown]
  - Blood lactate dehydrogenase increased [Unknown]
  - Skin haemorrhage [Unknown]
  - Hepatotoxicity [Unknown]

NARRATIVE: CASE EVENT DATE: 20150806
